FAERS Safety Report 15622212 (Version 2)
Quarter: 2018Q4

REPORT INFORMATION
  Report Type: Spontaneous
  Country: GB (occurrence: GB)
  Receive Date: 20181115
  Receipt Date: 20181203
  Transmission Date: 20190205
  Serious: Yes (Hospitalization)
  Sender: FDA-Public Use
  Company Number: GB-MYLANLABS-2017M1077450

PATIENT
  Age: 60 Year
  Sex: Female

DRUGS (2)
  1. CLOZARIL [Suspect]
     Active Substance: CLOZAPINE
     Dosage: UNK
     Route: 048
     Dates: start: 20010701, end: 20181123
  2. CLOZARIL [Suspect]
     Active Substance: CLOZAPINE
     Indication: SCHIZOPHRENIA
     Dosage: UNK
     Route: 048
     Dates: start: 19950622

REACTIONS (5)
  - Antipsychotic drug level increased [Unknown]
  - Dysphagia [Unknown]
  - Lung carcinoma cell type unspecified stage IV [Unknown]
  - Haemoglobin increased [Unknown]
  - Anaemia [Unknown]

NARRATIVE: CASE EVENT DATE: 20171204
